FAERS Safety Report 5426871-8 (Version None)
Quarter: 2007Q3

REPORT INFORMATION
  Report Type: 
  Country: None (occurrence: None)
  Receive Date: 20070827
  Receipt Date: 20070823
  Transmission Date: 20080115
  Serious: Yes (Hospitalization)
  Sender: FDA-Public Use
  Company Number: JP-BOEHRINGER INGELHEIM PHARMACEUTICALS, INC.-2007-BP-17630NB

PATIENT
  Sex: Male
  Weight: 58 kg

DRUGS (10)
  1. SPIRIVA [Suspect]
     Indication: CHRONIC OBSTRUCTIVE PULMONARY DISEASE
     Route: 055
     Dates: start: 20070503, end: 20070724
  2. ALLORIN [Suspect]
     Indication: HYPERURICAEMIA
     Route: 048
     Dates: start: 20070503, end: 20070724
  3. WARFARIN SODIUM [Suspect]
     Indication: ATRIAL FIBRILLATION
     Route: 048
     Dates: start: 20070428, end: 20070717
  4. SAWADOL L [Concomitant]
     Indication: ANGINA PECTORIS
     Route: 048
  5. NORVASC [Concomitant]
     Indication: HYPERTENSION
     Route: 048
  6. BUFFERIN [Concomitant]
     Indication: ANGINA PECTORIS
     Route: 048
  7. RENIVEZE [Concomitant]
     Indication: HYPERTENSION
     Route: 048
  8. RENIVEZE [Concomitant]
     Indication: CARDIAC FAILURE CONGESTIVE
  9. GLUFAST (MITIGLINIDE CALCIUM HYDRATE) [Concomitant]
     Indication: DIABETES MELLITUS
     Route: 048
  10. LASIX [Concomitant]
     Indication: CARDIAC FAILURE CONGESTIVE
     Route: 048
     Dates: start: 20070425

REACTIONS (2)
  - EOSINOPHILIC PNEUMONIA [None]
  - INTERSTITIAL LUNG DISEASE [None]
